FAERS Safety Report 25320126 (Version 3)
Quarter: 2025Q2

REPORT INFORMATION
  Report Type: Report from Study
  Country: CY (occurrence: CY)
  Receive Date: 20250515
  Receipt Date: 20250610
  Transmission Date: 20250716
  Serious: Yes (Death, Hospitalization)
  Sender: PFIZER
  Company Number: CY-009507513-2279776

PATIENT
  Age: 54 Year
  Sex: Male

DRUGS (6)
  1. CARBOPLATIN [Suspect]
     Active Substance: CARBOPLATIN
     Indication: Non-small cell lung cancer metastatic
     Dosage: AUC5, EVERY 3 WEEKS (Q3WEEKS)
     Dates: start: 20200217, end: 20200330
  2. CARBOPLATIN [Suspect]
     Active Substance: CARBOPLATIN
     Dosage: AUC5, EVERY 3 WEEKS (Q3WEEKS)
     Dates: start: 20200403, end: 20200424
  3. PEMBROLIZUMAB [Suspect]
     Active Substance: PEMBROLIZUMAB
     Indication: Non-small cell lung cancer metastatic
     Dosage: 200 MG, EVERY 3 WEEKS
     Dates: start: 20200217, end: 20200330
  4. PEMBROLIZUMAB [Suspect]
     Active Substance: PEMBROLIZUMAB
     Dosage: 200 MG, EVERY 3 WEEKS
     Dates: start: 20200424
  5. PEMETREXED DISODIUM [Suspect]
     Active Substance: PEMETREXED DISODIUM
     Indication: Non-small cell lung cancer metastatic
     Dosage: 500 MG/M2, EVERY 3 WEEKS
     Dates: start: 20200217, end: 20200330
  6. PEMETREXED DISODIUM [Suspect]
     Active Substance: PEMETREXED DISODIUM
     Dosage: 500 MG/M2, EVERY 3 WEEKS
     Dates: start: 20200403, end: 20200424

REACTIONS (3)
  - Non-small cell lung cancer metastatic [Fatal]
  - Malignant neoplasm progression [Fatal]
  - Immune-mediated enterocolitis [Recovered/Resolved]

NARRATIVE: CASE EVENT DATE: 20200101
